FAERS Safety Report 14936781 (Version 3)
Quarter: 2019Q1

REPORT INFORMATION
  Report Type: Spontaneous
  Country: US (occurrence: US)
  Receive Date: 20180525
  Receipt Date: 20190225
  Transmission Date: 20190417
  Serious: Yes (Hospitalization, Other)
  Sender: FDA-Public Use
  Company Number: US-BRISTOL-MYERS SQUIBB COMPANY-BMS-2018-045553

PATIENT
  Sex: Female

DRUGS (1)
  1. SPRYCEL [Suspect]
     Active Substance: DASATINIB
     Indication: CHRONIC MYELOID LEUKAEMIA
     Dosage: 100 MG, QD
     Route: 048
     Dates: start: 20140101

REACTIONS (6)
  - Hypertension [Unknown]
  - Cognitive disorder [Unknown]
  - Fatigue [Unknown]
  - Arthropathy [Recovering/Resolving]
  - Hepatic enzyme increased [Unknown]
  - Memory impairment [Unknown]
